FAERS Safety Report 10065247 (Version 1)
Quarter: 2014Q2

REPORT INFORMATION
  Report Type: Spontaneous
  Country: JP (occurrence: JP)
  Receive Date: 20140408
  Receipt Date: 20140408
  Transmission Date: 20141212
  Serious: Yes (Other)
  Sender: FDA-Public Use
  Company Number: JP-PFIZER INC-2014095862

PATIENT
  Sex: Male

DRUGS (7)
  1. ALDACTONE A [Suspect]
     Route: 048
  2. ECARD HD [Concomitant]
  3. MAINTATE [Concomitant]
  4. WARFARIN [Concomitant]
  5. LUPRAC [Concomitant]
  6. AMLODIPINE [Concomitant]
  7. ALLOPURINOL [Concomitant]

REACTIONS (1)
  - Anuria [Recovered/Resolved]
